FAERS Safety Report 11247880 (Version 1)
Quarter: 2015Q3

REPORT INFORMATION
  Report Type: Spontaneous
  Country: US (occurrence: None)
  Receive Date: 20150706
  Receipt Date: 20150706
  Transmission Date: 20151125
  Serious: Yes (Disabling, Other)
  Sender: FDA-Public Use
  Company Number: CO-ZN-UK-2015-022

PATIENT
  Age: 18 Year
  Sex: Male
  Weight: 92 kg

DRUGS (2)
  1. OMEPRAZOLE. [Concomitant]
     Active Substance: OMEPRAZOLE
  2. ZANTAC [Suspect]
     Active Substance: RANITIDINE HYDROCHLORIDE
     Indication: DYSPEPSIA
     Route: 048
     Dates: start: 20150606, end: 20150607

REACTIONS (7)
  - Cognitive disorder [None]
  - Motor dysfunction [None]
  - Alcohol intolerance [None]
  - Anterograde amnesia [None]
  - Loss of consciousness [None]
  - Intentional product use issue [None]
  - Alcohol interaction [None]

NARRATIVE: CASE EVENT DATE: 20150606
